FAERS Safety Report 8059246-6 (Version None)
Quarter: 2012Q1

REPORT INFORMATION
  Report Type: 
  Country: None (occurrence: None)
  Receive Date: 20120112
  Receipt Date: 20111229
  Transmission Date: 20120608
  Serious: Yes (Hospitalization)
  Sender: FDA-Public Use
  Company Number: 1000026606

PATIENT
  Age: 82 Year
  Sex: Female

DRUGS (12)
  1. LANIRAPID 9METILDIGOXIN) (METILDIGOXIN) [Concomitant]
  2. NITRODERM TTS (GLYCERYL TRINITRATE) (GLYCERYL TRINITRATE) [Concomitant]
  3. ARICEPT [Concomitant]
  4. ZOLPIDEM TARTRATE [Concomitant]
  5. ASPARA K (POTASSIUM ASPARTATE) (POTASSIUM ASPARTATE) [Concomitant]
  6. MEMANTINE HYDROCHLORIDE [Suspect]
     Indication: DEMENTIA ALZHEIMER'S TYPE
     Dosage: 10 MG (5 MG, 2 IN 1 D), ORAL
     Route: 048
     Dates: start: 20111125, end: 20111201
  7. LUPRAC (TORASEMIDE) (TORASEMIDE) [Concomitant]
  8. CARVEDILOL [Concomitant]
  9. GRAMALIL (TIAPRIDE HYDROCHLORIDE) (TIAPRIDE HYDROCHLORIDE) [Concomitant]
  10. ATELEC (CILNIDIPINE) (CILNIDIPINE) [Concomitant]
  11. MEMANTINE HYDROCHLORIDE [Suspect]
     Indication: DEMENTIA ALZHEIMER'S TYPE
     Dosage: 20 MG (10 MG, 2 IN 1 D), ORAL
     Route: 048
     Dates: start: 20111202, end: 20111205
  12. OLMESARTAN MEDOXOMIL [Concomitant]

REACTIONS (5)
  - PALPITATIONS [None]
  - CARDIAC FAILURE [None]
  - CONDITION AGGRAVATED [None]
  - HAEMATOCRIT DECREASED [None]
  - HAEMOGLOBIN DECREASED [None]
